FAERS Safety Report 6416402-8 (Version None)
Quarter: 2009Q4

REPORT INFORMATION
  Report Type: 
  Country: None (occurrence: None)
  Receive Date: 20091022
  Receipt Date: 20091005
  Transmission Date: 20100525
  Serious: Yes (Disabling)
  Sender: FDA-Public Use
  Company Number: BVT-000342

PATIENT
  Age: 20 Year
  Sex: Female
  Weight: 80 kg

DRUGS (1)
  1. KINERET [Suspect]
     Indication: CHRONIC INFANTILE NEUROLOGICAL CUTANEOUS AND ARTICULAR SYNDROME
     Dosage: 224 MG;
     Dates: start: 20050101

REACTIONS (3)
  - CHRONIC INFANTILE NEUROLOGICAL CUTANEOUS AND ARTICULAR SYNDROME [None]
  - CONDITION AGGRAVATED [None]
  - DISEASE RECURRENCE [None]
